FAERS Safety Report 9810067 (Version 2)
Quarter: 2015Q3

REPORT INFORMATION
  Report Type: Spontaneous
  Country: US (occurrence: US)
  Receive Date: 20140110
  Receipt Date: 20150909
  Transmission Date: 20151125
  Serious: Yes (Other)
  Sender: FDA-Public Use
  Company Number: US-SANOFI-AVENTIS-2013SA071478

PATIENT
  Age: 78 Year
  Sex: Male

DRUGS (5)
  1. ASPIRIN. [Suspect]
     Active Substance: ASPIRIN
     Dates: start: 200703
  2. LOVENOX [Concomitant]
     Active Substance: ENOXAPARIN SODIUM
  3. PLAVIX [Suspect]
     Active Substance: CLOPIDOGREL BISULFATE
     Indication: CEREBROVASCULAR ACCIDENT
     Route: 048
     Dates: start: 2007, end: 2007
  4. PLAVIX [Suspect]
     Active Substance: CLOPIDOGREL BISULFATE
     Indication: TRANSIENT ISCHAEMIC ATTACK
     Route: 048
     Dates: start: 2007, end: 2007
  5. COUMADIN [Concomitant]
     Active Substance: WARFARIN SODIUM
     Dates: start: 2007, end: 2014

REACTIONS (7)
  - Anaemia [Unknown]
  - Renal failure [Unknown]
  - Neuralgia [Unknown]
  - Prostatic disorder [Unknown]
  - Gastrointestinal haemorrhage [Unknown]
  - Hypothyroidism [Unknown]
  - Incontinence [Unknown]

NARRATIVE: CASE EVENT DATE: 200702
